FAERS Safety Report 6102234-7 (Version None)
Quarter: 2009Q1

REPORT INFORMATION
  Report Type: 
  Country: None (occurrence: None)
  Receive Date: 20090304
  Receipt Date: 20090217
  Transmission Date: 20090719
  Serious: Yes (Death)
  Sender: FDA-Public Use
  Company Number: US-TYCO HEALTHCARE/MALLINCKRODT-T200900426

PATIENT
  Age: 91 Year
  Sex: Male

DRUGS (1)
  1. MORPHINE ORAL CONCENTRATE [Suspect]
     Route: 048

REACTIONS (1)
  - MEDICATION ERROR [None]
